FAERS Safety Report 14773931 (Version 2)
Quarter: 2018Q2

REPORT INFORMATION
  Report Type: Spontaneous
  Country: ES (occurrence: ES)
  Receive Date: 20180418
  Receipt Date: 20180424
  Transmission Date: 20180711
  Serious: Yes (Death, Other)
  Sender: FDA-Public Use
  Company Number: ES-ASTELLAS-2018US017992

PATIENT
  Age: 70 Year
  Sex: Male

DRUGS (6)
  1. MYCOPHENOLATE MOFETIL. [Suspect]
     Active Substance: MYCOPHENOLATE MOFETIL
     Indication: RENAL TRANSPLANT
     Route: 065
  2. TACROLIMUS. [Suspect]
     Active Substance: TACROLIMUS
     Indication: RENAL TRANSPLANT
     Route: 065
  3. PREDNISONE. [Suspect]
     Active Substance: PREDNISONE
     Indication: RENAL TRANSPLANT
     Route: 065
  4. LINEZOLID. [Suspect]
     Active Substance: LINEZOLID
     Indication: SCEDOSPORIUM INFECTION
     Dosage: UNK UNK, UNKNOWN FREQ.
     Route: 065
  5. MEROPENEM. [Suspect]
     Active Substance: MEROPENEM
     Indication: SCEDOSPORIUM INFECTION
     Dosage: UNK UNK, UNKNOWN FREQ.
     Route: 065
  6. AMPHOTERICIN B, LIPOSOME [Suspect]
     Active Substance: AMPHOTERICIN B
     Indication: SCEDOSPORIUM INFECTION
     Dosage: UNK UNK, UNKNOWN FREQ.
     Route: 065

REACTIONS (12)
  - CNS ventriculitis [Unknown]
  - Death [Fatal]
  - Uveitis [Unknown]
  - Cytomegalovirus infection [Unknown]
  - Subarachnoid haemorrhage [Unknown]
  - Postoperative wound infection [Unknown]
  - Escherichia infection [Unknown]
  - Staphylococcal infection [Unknown]
  - Drug ineffective [Fatal]
  - Hypertensive hydrocephalus [Unknown]
  - Scedosporium infection [Unknown]
  - Encephalitis [Unknown]
